FAERS Safety Report 5489067-X (Version None)
Quarter: 2007Q4

REPORT INFORMATION
  Report Type: 
  Country: None (occurrence: None)
  Receive Date: 20071018
  Receipt Date: 20071015
  Transmission Date: 20080405
  Serious: Yes (Hospitalization)
  Sender: FDA-Public Use
  Company Number: DE-WYE-G00465707

PATIENT
  Sex: Female
  Weight: 80 kg

DRUGS (1)
  1. VENLAFAXINE HCL [Suspect]
     Dosage: 40 TABLETS (OVERDOSE AMOUNT 3000 MG)
     Route: 048
     Dates: start: 20071012, end: 20071012

REACTIONS (2)
  - AGGRESSION [None]
  - INTENTIONAL OVERDOSE [None]
